FAERS Safety Report 15777019 (Version 2)
Quarter: 2019Q1

REPORT INFORMATION
  Report Type: Spontaneous
  Country: JP (occurrence: JP)
  Receive Date: 20181231
  Receipt Date: 20190219
  Transmission Date: 20190417
  Serious: Yes (Other)
  Sender: FDA-Public Use
  Company Number: JP-009507513-1812JPN003789J

PATIENT
  Age: 68 Year
  Sex: Male

DRUGS (3)
  1. BELSOMRA [Suspect]
     Active Substance: SUVOREXANT
     Indication: INSOMNIA
     Dosage: 15 MILLIGRAM, QD
     Route: 048
     Dates: start: 20180417, end: 201804
  2. SILECE [Concomitant]
     Active Substance: FLUNITRAZEPAM
     Indication: INSOMNIA
     Dosage: 1 MILLIGRAM, QD
     Route: 048
     Dates: start: 20180126
  3. QUETIAPINE. [Concomitant]
     Active Substance: QUETIAPINE
     Indication: RESTLESSNESS
     Dosage: 25 MILLIGRAM, BID
     Route: 048
     Dates: start: 20180417

REACTIONS (2)
  - Bradycardia [Recovered/Resolved]
  - Palpitations [Recovering/Resolving]

NARRATIVE: CASE EVENT DATE: 201804
